FAERS Safety Report 18219463 (Version 4)
Quarter: 2022Q4

REPORT INFORMATION
  Report Type: Spontaneous
  Country: US (occurrence: US)
  Receive Date: 20200901
  Receipt Date: 20221219
  Transmission Date: 20230113
  Serious: Yes (Death, Other)
  Sender: FDA-Public Use
  Company Number: US-PFIZER INC-2020337892

PATIENT
  Age: 75 Year
  Sex: Female

DRUGS (1)
  1. IBRANCE [Suspect]
     Active Substance: PALBOCICLIB
     Dosage: 100 MG, CYCLIC(DAILY FOR 21 DAYS ON, 7 DAYS OFF ON A 28 DAY CYCLE)

REACTIONS (6)
  - Pulmonary embolism [Fatal]
  - Rash [Unknown]
  - Diarrhoea [Not Recovered/Not Resolved]
  - Colitis [Unknown]
  - Fatigue [Unknown]
  - Nasal congestion [Unknown]

NARRATIVE: CASE EVENT DATE: 20220928
